FAERS Safety Report 24678990 (Version 1)
Quarter: 2024Q4

REPORT INFORMATION
  Report Type: Other
  Country: PT (occurrence: PT)
  Receive Date: 20241129
  Receipt Date: 20241129
  Transmission Date: 20250115
  Serious: Yes (Death)
  Sender: BIONPHARMA INC.
  Company Number: PT-Bion-014379

PATIENT
  Age: 60 Year
  Sex: Male

DRUGS (12)
  1. DEXAMETHASONE [Suspect]
     Active Substance: DEXAMETHASONE
     Indication: Angiocentric lymphoma
     Dosage: HYPER-CVAD THERAPY
  2. CYCLOPHOSPHAMIDE [Concomitant]
     Active Substance: CYCLOPHOSPHAMIDE
     Indication: Angiocentric lymphoma
     Dosage: HYPER-CVAD THERAPY
  3. VINCRISTINE [Concomitant]
     Active Substance: VINCRISTINE
     Indication: Angiocentric lymphoma
     Dosage: HYPER-CVAD THERAPY
  4. DOXORUBICIN [Concomitant]
     Active Substance: DOXORUBICIN
     Indication: Angiocentric lymphoma
     Dosage: HYPER-CVAD THERAPY
  5. PREDNISOLONE [Concomitant]
     Active Substance: PREDNISOLONE
     Indication: Angiocentric lymphoma
     Dosage: CHOP REGIMEN
  6. RITUXIMAB [Concomitant]
     Active Substance: RITUXIMAB
     Indication: Angiocentric lymphoma
     Dosage: R-ICE REGIMEN
  7. IFOSFAMIDE [Concomitant]
     Active Substance: IFOSFAMIDE
     Indication: Angiocentric lymphoma
     Dosage: R-ICE REGIMEN
  8. CARBOPLATIN [Concomitant]
     Active Substance: CARBOPLATIN
     Indication: Angiocentric lymphoma
     Dosage: R-ICE REGIMEN
  9. ETOPOSIDE [Concomitant]
     Active Substance: ETOPOSIDE
     Indication: Angiocentric lymphoma
     Dosage: R-ICE REGIMEN
  10. CYCLOPHOSPHAMIDE [Concomitant]
     Active Substance: CYCLOPHOSPHAMIDE
     Indication: Angiocentric lymphoma
     Dosage: CHOP REGIMEN
  11. VINCRISTINE [Concomitant]
     Active Substance: VINCRISTINE
     Indication: Angiocentric lymphoma
     Dosage: CHOP REGIMEN
  12. DOXORUBICIN [Concomitant]
     Active Substance: DOXORUBICIN
     Indication: Angiocentric lymphoma
     Dosage: CHOP REGIMEN

REACTIONS (4)
  - Drug ineffective [Fatal]
  - Haematotoxicity [Fatal]
  - Infection [Fatal]
  - Gastrointestinal toxicity [Fatal]
